FAERS Safety Report 17493176 (Version 1)
Quarter: 2020Q1

REPORT INFORMATION
  Report Type: Spontaneous
  Country: CZ (occurrence: CZ)
  Receive Date: 20200304
  Receipt Date: 20200304
  Transmission Date: 20200409
  Serious: Yes (Life-Threatening, Hospitalization)
  Sender: FDA-Public Use
  Company Number: CZ-ROCHE-2558783

PATIENT
  Age: 57 Year
  Sex: Male
  Weight: 98 kg

DRUGS (10)
  1. LYRICA [Concomitant]
     Active Substance: PREGABALIN
     Dosage: 2-0-2
     Route: 048
  2. STACYL [Concomitant]
     Dosage: 1-0-0
     Route: 048
  3. PREDNISON [Concomitant]
     Active Substance: PREDNISONE
     Dosage: 1/2-0-0
     Route: 048
  4. PALEXIA [Concomitant]
     Active Substance: TAPENTADOL HYDROCHLORIDE
     Dosage: 1-1-1
     Route: 048
  5. CALCICHEW D3 [Concomitant]
     Active Substance: CALCIUM\CHOLECALCIFEROL
     Dosage: 0-0-1
     Route: 048
  6. AMESOS [Suspect]
     Active Substance: AMLODIPINE BESYLATE\LISINOPRIL
     Indication: HYPERTENSION
     Dosage: 1-0-0? 20MG/10MG
     Route: 048
     Dates: end: 20200206
  7. OMEPRAZOLE. [Concomitant]
     Active Substance: OMEPRAZOLE
     Dosage: 1-0-0 ON AN EMPTY STOMACH
     Route: 048
  8. ESBRIET [Suspect]
     Active Substance: PIRFENIDONE
     Indication: IDIOPATHIC PULMONARY FIBROSIS
     Dosage: GRADUALLY INCREASED - 3X1, AFTER 1 WEEK 3X2, AFTER THE NEXT WEEK 3X3
     Route: 048
     Dates: end: 20200206
  9. PALEXIA [Concomitant]
     Active Substance: TAPENTADOL HYDROCHLORIDE
     Route: 065
  10. NEBILET [Concomitant]
     Active Substance: NEBIVOLOL
     Dosage: 1 AND 1/2-0-0
     Route: 048

REACTIONS (4)
  - Dysphagia [Recovered/Resolved]
  - Rash [Recovering/Resolving]
  - Angioedema [Recovered/Resolved]
  - Odynophagia [Recovered/Resolved]

NARRATIVE: CASE EVENT DATE: 202001
